FAERS Safety Report 7199694-X (Version None)
Quarter: 2010Q4

REPORT INFORMATION
  Report Type: 
  Country: None (occurrence: None)
  Receive Date: 20101214
  Receipt Date: 20101202
  Transmission Date: 20110411
  Serious: Yes (Other)
  Sender: FDA-Public Use
  Company Number: 2010JP005552

PATIENT
  Age: 50 Year
  Sex: Male
  Weight: 61 kg

DRUGS (19)
  1. TACROLIMUS [Suspect]
     Indication: HEART TRANSPLANT
     Dosage: SEE IMAGE:  ORAL
     Route: 048
     Dates: start: 20061030, end: 20070101
  2. TACROLIMUS [Suspect]
     Indication: HEART TRANSPLANT
     Dosage: SEE IMAGE:  ORAL
     Route: 048
     Dates: start: 20070101, end: 20070101
  3. TACROLIMUS [Suspect]
     Indication: HEART TRANSPLANT
     Dosage: SEE IMAGE: ORAL
     Route: 048
     Dates: start: 20061030, end: 20070101
  4. TACROLIMUS [Suspect]
     Indication: HEART TRANSPLANT
     Dosage: SEE IMAGE: ORAL
     Route: 048
     Dates: start: 20070101, end: 20070101
  5. PREDNISOLONE [Suspect]
     Indication: HEART TRANSPLANT
     Dosage: SEE IMAGE:  ORAL
     Route: 048
     Dates: start: 20061102, end: 20061102
  6. PREDNISOLONE [Suspect]
     Indication: HEART TRANSPLANT
     Dosage: SEE IMAGE:  ORAL
     Route: 048
     Dates: start: 20061105, end: 20070101
  7. CELLCEPT [Suspect]
     Indication: HEART TRANSPLANT
     Dosage: SEE IMAGE: ORAL
     Route: 048
     Dates: start: 20061030, end: 20061030
  8. CELLCEPT [Suspect]
     Indication: HEART TRANSPLANT
     Dosage: SEE IMAGE: ORAL
     Route: 048
     Dates: start: 20061031, end: 20061207
  9. SOLU-MEDROL [Concomitant]
  10. VALIXA (VALGANCICLOVIR HYDROCHLORIDE) [Concomitant]
  11. OMEPRAZOLE [Concomitant]
  12. CANDESARTAN CILEXETIL [Concomitant]
  13. CLARUTE-R (DILTIAZEM HYDROCHLORIDE) [Concomitant]
  14. BAYASPIRIN 9ACETYLSALICYLIC ACID) [Concomitant]
  15. PRAVASTATIN SODIUM [Concomitant]
  16. BAKTAR (SULFEMETHOXAZOLE, TRIMETHOPRIUM) [Concomitant]
  17. DOGMATYL (SULPIRIDE) [Concomitant]
  18. SIGMART (NICORANDIL) [Concomitant]
  19. LASIX [Concomitant]

REACTIONS (2)
  - HYPOGAMMAGLOBULINAEMIA [None]
  - OSTEOPOROSIS [None]
